FAERS Safety Report 7040080-0 (Version None)
Quarter: 2010Q4

REPORT INFORMATION
  Report Type: 
  Country: None (occurrence: None)
  Receive Date: 20101012
  Receipt Date: 20100928
  Transmission Date: 20110411
  Serious: Yes (Other)
  Sender: FDA-Public Use
  Company Number: PHHY2010US65265

PATIENT
  Sex: Male
  Weight: 23 kg

DRUGS (1)
  1. EXJADE [Suspect]
     Indication: APLASTIC ANAEMIA
     Dosage: 750 MG, QD
     Route: 048
     Dates: start: 20070301, end: 20100901

REACTIONS (1)
  - ACUTE MYELOID LEUKAEMIA [None]
